FAERS Safety Report 11175964 (Version 1)
Quarter: 2015Q2

REPORT INFORMATION
  Report Type: Spontaneous
  Country: US (occurrence: US)
  Receive Date: 20150609
  Receipt Date: 20150609
  Transmission Date: 20150821
  Serious: Yes (Hospitalization)
  Sender: FDA-Public Use
  Company Number: US-ACTELION-A-US2015-118073

PATIENT
  Age: 57 Year
  Sex: Female

DRUGS (5)
  1. VENTAVIS [Suspect]
     Active Substance: ILOPROST
     Dosage: 5 MCG, 6-9X/DAY
     Route: 055
  2. LETAIRIS [Concomitant]
     Active Substance: AMBRISENTAN
  3. VENTAVIS [Suspect]
     Active Substance: ILOPROST
     Indication: PULMONARY HYPERTENSION
     Dosage: 5 MCG, 4-6X PER DAY
     Route: 055
     Dates: start: 20101110
  4. ADCIRCA [Concomitant]
     Active Substance: TADALAFIL
  5. VENTAVIS [Suspect]
     Active Substance: ILOPROST
     Dosage: 5 MCG, TID
     Route: 055

REACTIONS (6)
  - Foot fracture [Unknown]
  - Pulmonary oedema [Unknown]
  - Chest pain [Unknown]
  - Fall [Unknown]
  - Contusion [Unknown]
  - Pneumonia [Unknown]
